FAERS Safety Report 9265822 (Version 3)
Quarter: 2013Q2

REPORT INFORMATION
  Report Type: Spontaneous
  Country: FR (occurrence: FR)
  Receive Date: 20130501
  Receipt Date: 20130618
  Transmission Date: 20140414
  Serious: Yes (Other)
  Sender: FDA-Public Use
  Company Number: FR-GLAXOSMITHKLINE-B0876836A

PATIENT
  Sex: Male
  Weight: 61 kg

DRUGS (8)
  1. REQUIP [Suspect]
     Indication: PARKINSON^S DISEASE
     Route: 048
     Dates: start: 20030520
  2. REQUIP LP [Suspect]
     Indication: PARKINSON^S DISEASE
     Route: 048
     Dates: start: 2010, end: 201109
  3. VALIUM [Concomitant]
     Indication: DEPRESSION
     Route: 065
  4. MODOPAR [Concomitant]
     Indication: PARKINSON^S DISEASE
     Route: 065
     Dates: start: 2003
  5. APOMORPHINE [Concomitant]
     Indication: PARKINSON^S DISEASE
     Route: 065
     Dates: end: 201008
  6. ZOLOFT [Concomitant]
     Indication: DEPRESSION
     Dosage: 150MG PER DAY
     Route: 065
  7. GUTRON [Concomitant]
     Dosage: 2UNIT THREE TIMES PER DAY
     Route: 065
  8. RIVOTRIL [Concomitant]
     Route: 065
     Dates: end: 20111008

REACTIONS (7)
  - Obsessive-compulsive disorder [Recovered/Resolved with Sequelae]
  - Depression [Unknown]
  - Abnormal behaviour [Not Recovered/Not Resolved]
  - Disorientation [Unknown]
  - Social avoidant behaviour [Unknown]
  - Malaise [Unknown]
  - Suicidal ideation [Unknown]
